FAERS Safety Report 8926344 (Version 4)
Quarter: 2012Q4

REPORT INFORMATION
  Report Type: 
  Country: IT (occurrence: IT)
  Receive Date: 20121126
  Receipt Date: 20121218
  Transmission Date: 20130627
  Serious: Yes (Other)
  Sender: FDA-Public Use
  Company Number: PHHY2012IT107031

PATIENT
  Age: 63 Year
  Sex: Male

DRUGS (5)
  1. GILENYA [Suspect]
     Indication: MULTIPLE SCLEROSIS
     Dosage: 0.5 mg, QD
     Route: 048
     Dates: start: 20111016
  2. GABAPENTIN [Concomitant]
     Dosage: 300 mg, UNK
     Route: 048
     Dates: start: 20040101
  3. MIRTAZAPINA DOC [Concomitant]
     Dosage: 30 mg, UNK
     Route: 048
     Dates: start: 20051001
  4. LYRICA [Concomitant]
     Dosage: 75 mg, UNK
     Route: 048
     Dates: start: 20110501
  5. XERISTAR [Concomitant]
     Dosage: 60 mg, UNK
     Route: 048
     Dates: start: 20110501

REACTIONS (1)
  - Skin papilloma [Not Recovered/Not Resolved]
